FAERS Safety Report 5783111-8 (Version None)
Quarter: 2008Q2

REPORT INFORMATION
  Report Type: 
  Country: None (occurrence: None)
  Receive Date: 20080619
  Receipt Date: 20080619
  Transmission Date: 20081010
  Serious: Yes (Other)
  Sender: FDA-Public Use
  Company Number: None

PATIENT
  Age: 61 Year
  Sex: Female
  Weight: 53.5244 kg

DRUGS (1)
  1. TOPAMAX [Suspect]
     Indication: MIGRAINE
     Dosage: 100MG BID PO
     Route: 048
     Dates: start: 20060801, end: 20080515

REACTIONS (5)
  - FATIGUE [None]
  - MUSCLE ATROPHY [None]
  - MYALGIA [None]
  - PAIN IN EXTREMITY [None]
  - WEIGHT DECREASED [None]
